FAERS Safety Report 15951213 (Version 3)
Quarter: 2019Q2

REPORT INFORMATION
  Report Type: Report from Study
  Country: CA (occurrence: CA)
  Receive Date: 20190211
  Receipt Date: 20190617
  Transmission Date: 20190711
  Serious: Yes (Hospitalization, Other)
  Sender: FDA-Public Use
  Company Number: CA-BRISTOL-MYERS SQUIBB COMPANY-BMS-2018-094884

PATIENT
  Sex: Female

DRUGS (1)
  1. ABATACEPT [Suspect]
     Active Substance: ABATACEPT
     Indication: RHEUMATOID ARTHRITIS
     Dosage: 500 MG, Q4WK
     Route: 042
     Dates: start: 20150226, end: 20190607

REACTIONS (12)
  - Eating disorder [Unknown]
  - Diverticulitis [Recovering/Resolving]
  - Malaise [Unknown]
  - Lower respiratory tract infection [Recovering/Resolving]
  - Hypotension [Recovered/Resolved]
  - Pneumothorax [Recovered/Resolved]
  - Fall [Recovering/Resolving]
  - Gastrointestinal disorder [Not Recovered/Not Resolved]
  - Vomiting [Unknown]
  - Poor quality sleep [Unknown]
  - Lung neoplasm malignant [Unknown]
  - Stress [Unknown]
